FAERS Safety Report 10903301 (Version 10)
Quarter: 2017Q1

REPORT INFORMATION
  Report Type: Report from Study
  Country: JP (occurrence: JP)
  Receive Date: 20150311
  Receipt Date: 20170329
  Transmission Date: 20170428
  Serious: Yes (Death, Life-Threatening, Hospitalization)
  Sender: FDA-Public Use
  Company Number: JP-PFIZER INC-2015087308

PATIENT
  Age: 87 Year
  Sex: Female
  Weight: 51 kg

DRUGS (32)
  1. XELJANZ [Suspect]
     Active Substance: TOFACITINIB CITRATE
     Dosage: 5 MG, 1X/DAY
     Route: 048
     Dates: start: 20141015, end: 20141111
  2. XELJANZ [Suspect]
     Active Substance: TOFACITINIB CITRATE
     Dosage: 5 MG, 2X/DAY
     Route: 048
     Dates: start: 20150305
  3. URSODEOXYCHOL [Concomitant]
     Dosage: UNK
     Route: 048
     Dates: start: 20141120
  4. XELJANZ [Suspect]
     Active Substance: TOFACITINIB CITRATE
     Dosage: 5 MG, 1X/DAY
     Route: 048
     Dates: start: 20150105, end: 20150108
  5. XELJANZ [Suspect]
     Active Substance: TOFACITINIB CITRATE
     Dosage: 5 MG, 2X/DAY
     Route: 048
     Dates: start: 20150109, end: 20150204
  6. METHOTREXATE. [Suspect]
     Active Substance: METHOTREXATE
     Dosage: 4 MG, WEEKLY
     Route: 048
     Dates: start: 20151003, end: 20151017
  7. PREDNISOLONE. [Suspect]
     Active Substance: PREDNISOLONE
     Dosage: 16 MG, UNK
     Route: 048
     Dates: start: 20141120, end: 20141126
  8. PREDNISOLONE. [Suspect]
     Active Substance: PREDNISOLONE
     Dosage: 13 MG, UNK
     Route: 048
     Dates: start: 20141211, end: 20150114
  9. GASLON [Concomitant]
     Active Substance: IRSOGLADINE MALEATE
     Route: 048
  10. PREDNISOLONE. [Suspect]
     Active Substance: PREDNISOLONE
     Dosage: 15 MG, DAILY
     Route: 048
     Dates: start: 20150723, end: 20150726
  11. PREDNISOLONE. [Suspect]
     Active Substance: PREDNISOLONE
     Dosage: 10 MG, UNK
     Route: 048
     Dates: start: 20150219, end: 20150318
  12. PREDNISOLONE. [Suspect]
     Active Substance: PREDNISOLONE
     Dosage: 9 MG, DAILY
     Route: 048
     Dates: start: 20150319, end: 20150512
  13. NESINA [Concomitant]
     Active Substance: ALOGLIPTIN BENZOATE
     Route: 048
  14. MAGMITT [Concomitant]
     Active Substance: MAGNESIUM OXIDE
     Route: 048
  15. PREDNISOLONE. [Suspect]
     Active Substance: PREDNISOLONE
     Dosage: 14 MG, UNK
     Route: 048
     Dates: start: 20141204, end: 20141210
  16. PREDNISOLONE. [Suspect]
     Active Substance: PREDNISOLONE
     Dosage: 12 MG, UNK
     Route: 048
     Dates: start: 20150115, end: 20150121
  17. MYSLEE [Concomitant]
     Active Substance: ZOLPIDEM TARTRATE
     Route: 048
  18. XELJANZ [Suspect]
     Active Substance: TOFACITINIB CITRATE
     Indication: RHEUMATOID ARTHRITIS
     Dosage: 5 MG, ALTERNATE DAY
     Route: 048
     Dates: start: 20141007, end: 20141014
  19. PREDNISOLONE. [Suspect]
     Active Substance: PREDNISOLONE
     Dosage: 10 MG, DAILY
     Route: 048
     Dates: start: 20150513, end: 20150712
  20. PREDNISOLONE. [Suspect]
     Active Substance: PREDNISOLONE
     Dosage: 12.5 MG, DAILY
     Route: 048
     Dates: start: 20150727, end: 20151018
  21. ONE -ALPHA [Concomitant]
     Route: 048
  22. PARIET [Concomitant]
     Active Substance: RABEPRAZOLE SODIUM
     Route: 048
  23. CELECOX [Concomitant]
     Active Substance: CELECOXIB
     Route: 048
  24. BONALON [Concomitant]
     Active Substance: ALENDRONATE SODIUM
     Route: 048
  25. XELJANZ [Suspect]
     Active Substance: TOFACITINIB CITRATE
     Dosage: 5 MG, 2X/DAY
     Route: 048
     Dates: start: 20141112, end: 20141211
  26. PREDNISOLONE. [Suspect]
     Active Substance: PREDNISOLONE
     Dosage: 17 MG, UNK
     Route: 048
     Dates: start: 20141111, end: 20141119
  27. PREDNISOLONE. [Suspect]
     Active Substance: PREDNISOLONE
     Dosage: 15 MG, UNK
     Route: 048
     Dates: start: 20141127, end: 20141203
  28. PREDNISOLONE. [Suspect]
     Active Substance: PREDNISOLONE
     Dosage: 11 MG, UNK
     Route: 048
     Dates: start: 20150122, end: 20150218
  29. PREDNISOLONE. [Suspect]
     Active Substance: PREDNISOLONE
     Dosage: 20 MG, DAILY
     Route: 048
     Dates: start: 20150713, end: 20150722
  30. LOXONIN [Concomitant]
     Active Substance: LOXOPROFEN SODIUM
     Route: 003
  31. MINOMYCIN [Concomitant]
     Active Substance: MINOCYCLINE HYDROCHLORIDE
     Dosage: UNK
     Route: 048
     Dates: start: 20141029
  32. LYRICA [Concomitant]
     Active Substance: PREGABALIN
     Dosage: UNK
     Route: 048
     Dates: start: 20140926

REACTIONS (3)
  - Deep vein thrombosis [Recovered/Resolved]
  - Staphylococcal bacteraemia [Recovered/Resolved]
  - Death [Fatal]

NARRATIVE: CASE EVENT DATE: 20141212
